FAERS Safety Report 7309344-7 (Version None)
Quarter: 2011Q1

REPORT INFORMATION
  Report Type: 
  Country: None (occurrence: None)
  Receive Date: 20110223
  Receipt Date: 20110218
  Transmission Date: 20110831
  Serious: Yes (Other)
  Sender: FDA-Public Use
  Company Number: US-PFIZER INC-2011036675

PATIENT
  Sex: Female
  Weight: 93.424 kg

DRUGS (9)
  1. TRIAMTERENE AND HYDROCHLOROTHIAZIDE [Concomitant]
     Dosage: UNK
  2. HUMIRA [Concomitant]
     Dosage: UNK
  3. CODEINE PHOSPHATE/PARACETAMOL [Concomitant]
     Dosage: UNK
  4. EFFEXOR [Suspect]
     Indication: DEPRESSION
     Dosage: 50 MG, 2X/DAY
     Route: 048
     Dates: start: 20100501, end: 20100101
  5. FOLIC ACID [Concomitant]
     Dosage: UNK
  6. AMBIEN [Concomitant]
     Dosage: UNK
  7. XANAX [Concomitant]
     Dosage: UNK
  8. PREVACID [Concomitant]
     Dosage: UNK
  9. METHOTREXATE [Concomitant]
     Dosage: UNK

REACTIONS (2)
  - HYPERSENSITIVITY [None]
  - RASH [None]
